FAERS Safety Report 8329314-X (Version None)
Quarter: 2012Q2

REPORT INFORMATION
  Report Type: 
  Country: None (occurrence: None)
  Receive Date: 20120502
  Receipt Date: 20110725
  Transmission Date: 20120825
  Serious: No
  Sender: FDA-Public Use
  Company Number: US-ASTRAZENECA-2011SE44268

PATIENT
  Age: 54 Year
  Sex: Female
  Weight: 57.2 kg

DRUGS (1)
  1. FASLODEX [Suspect]
     Dosage: MONTHLY
     Route: 030
     Dates: start: 20110101

REACTIONS (1)
  - ALOPECIA [None]
